FAERS Safety Report 22306375 (Version 4)
Quarter: 2024Q1

REPORT INFORMATION
  Report Type: Spontaneous
  Country: CA (occurrence: CA)
  Receive Date: 20230511
  Receipt Date: 20240116
  Transmission Date: 20240410
  Serious: Yes (Hospitalization, Other)
  Sender: FDA-Public Use
  Company Number: CA-CELLTRION INC.-2023CA008300

PATIENT

DRUGS (9)
  1. INFLECTRA [Suspect]
     Active Substance: INFLIXIMAB-DYYB
     Indication: Colitis ulcerative
     Dosage: 10 MG/KG, W0 START AT HOSPITAL
     Route: 042
     Dates: start: 20230413
  2. INFLECTRA [Suspect]
     Active Substance: INFLIXIMAB-DYYB
     Dosage: 10 MG/KG, ADDITIONAL DOSE IN HOSPITAL
     Route: 042
     Dates: start: 20230420
  3. INFLECTRA [Suspect]
     Active Substance: INFLIXIMAB-DYYB
     Dosage: 10 MG/KG (RECEIVED 600 MG, AFTER 2 WEEKS, PATIENT IS SUPPOSED TO RECEIVE 10MG/KG (700MG)
     Route: 042
     Dates: start: 20230502
  4. INFLECTRA [Suspect]
     Active Substance: INFLIXIMAB-DYYB
     Dosage: 700 MG ON WEEK 6
     Route: 042
     Dates: start: 20230530
  5. INFLECTRA [Suspect]
     Active Substance: INFLIXIMAB-DYYB
     Dosage: 700 MG, EVERY 8 WEEKS (SUPPOSE TO RECIEVE 10MG/KG)
     Route: 042
     Dates: start: 20230725
  6. INFLECTRA [Suspect]
     Active Substance: INFLIXIMAB-DYYB
     Dosage: 700 MG, EVERY 8 WEEKS (SUPPOSE TO RECIEVE 10MG/KG)
     Route: 042
     Dates: start: 20231114
  7. INFLECTRA [Suspect]
     Active Substance: INFLIXIMAB-DYYB
     Dosage: 700 MG, EVERY 8 WEEKS (AFTER 7 WEEKS AND 6 DAYS)
     Route: 042
     Dates: start: 20240108
  8. SOLU-MEDROL [Concomitant]
     Active Substance: METHYLPREDNISOLONE SODIUM SUCCINATE
     Dosage: 1 DF
     Dates: start: 202304
  9. PREDNISONE [Concomitant]
     Active Substance: PREDNISONE
     Dosage: 1 DF
     Dates: start: 202304

REACTIONS (8)
  - Clostridium difficile infection [Unknown]
  - Condition aggravated [Not Recovered/Not Resolved]
  - Oedema peripheral [Recovered/Resolved]
  - Impaired healing [Not Recovered/Not Resolved]
  - Contusion [Not Recovered/Not Resolved]
  - Off label use [Unknown]
  - Off label use [Unknown]
  - Incorrect dose administered [Unknown]

NARRATIVE: CASE EVENT DATE: 20230101
